FAERS Safety Report 21141417 (Version 2)
Quarter: 2022Q4

REPORT INFORMATION
  Report Type: Report from Study
  Country: US (occurrence: US)
  Receive Date: 20220728
  Receipt Date: 20221012
  Transmission Date: 20230113
  Serious: Yes (Hospitalization)
  Sender: FDA-Public Use
  Company Number: US-JNJFOC-20220745534

PATIENT
  Age: 15 Year
  Sex: Female
  Weight: 52.3 kg

DRUGS (16)
  1. INFLIXIMAB [Suspect]
     Active Substance: INFLIXIMAB
     Indication: Inflammatory bowel disease
     Route: 041
     Dates: start: 201203, end: 20120822
  2. FLUTICASONE [Concomitant]
     Active Substance: FLUTICASONE
  3. ONDANSETRON [Concomitant]
     Active Substance: ONDANSETRON
  4. VITAMINS NOS [Concomitant]
     Active Substance: VITAMINS
  5. FISH OIL [Concomitant]
     Active Substance: FISH OIL
  6. ENTYVIO [Concomitant]
     Active Substance: VEDOLIZUMAB
  7. RUXOLITINIB [Concomitant]
     Active Substance: RUXOLITINIB
  8. ALBUTEROL [Concomitant]
     Active Substance: ALBUTEROL
  9. LORATINE [Concomitant]
  10. ASCORBIC ACID [Concomitant]
     Active Substance: ASCORBIC ACID
  11. ERGOCALCIFEROL [Concomitant]
     Active Substance: ERGOCALCIFEROL
  12. ACETAMINOPHEN [Concomitant]
     Active Substance: ACETAMINOPHEN
  13. CYPROHEPTADINE [Concomitant]
     Active Substance: CYPROHEPTADINE
  14. DICYCLOMINE [Concomitant]
     Active Substance: DICYCLOMINE HYDROCHLORIDE
  15. TACROLIMUS [Concomitant]
     Active Substance: TACROLIMUS
  16. HYDROCORTISONE [Concomitant]
     Active Substance: HYDROCORTISONE

REACTIONS (1)
  - Vasculitis [Recovered/Resolved]

NARRATIVE: CASE EVENT DATE: 20220705
